FAERS Safety Report 23774628 (Version 1)
Quarter: 2024Q2

REPORT INFORMATION
  Report Type: Spontaneous
  Country: GB (occurrence: GB)
  Receive Date: 20240423
  Receipt Date: 20240423
  Transmission Date: 20240716
  Serious: Yes (Other)
  Sender: FDA-Public Use
  Company Number: None

PATIENT
  Age: 2 Year
  Sex: Male

DRUGS (1)
  1. MONTELUKAST [Suspect]
     Active Substance: MONTELUKAST SODIUM
     Indication: Asthma
     Dosage: 5MG ONCE A DAY AT NIGHT; ;
     Route: 065
     Dates: start: 2019, end: 202402

REACTIONS (10)
  - Nightmare [Recovering/Resolving]
  - Insomnia [Recovering/Resolving]
  - Dysphemia [Recovered/Resolved]
  - Hypersensitivity [Recovering/Resolving]
  - Somnambulism [Recovered/Resolved]
  - Disturbance in attention [Recovering/Resolving]
  - Headache [Recovered/Resolved]
  - Irritability [Recovering/Resolving]
  - Tic [Not Recovered/Not Resolved]
  - Oropharyngeal pain [Not Recovered/Not Resolved]

NARRATIVE: CASE EVENT DATE: 20190101
